FAERS Safety Report 16333778 (Version 1)
Quarter: 2019Q2

REPORT INFORMATION
  Report Type: Spontaneous
  Country: US (occurrence: US)
  Receive Date: 20190520
  Receipt Date: 20190520
  Transmission Date: 20190711
  Serious: No
  Sender: FDA-Public Use
  Company Number: US-MISSION PHARMACAL COMPANY-2067210

PATIENT
  Sex: Male

DRUGS (1)
  1. POTASSIUM CITRATE. [Suspect]
     Active Substance: POTASSIUM CITRATE
     Indication: RENAL DISORDER PROPHYLAXIS
     Route: 048

REACTIONS (2)
  - Foreign body in respiratory tract [Recovering/Resolving]
  - Foreign body in respiratory tract [None]
